FAERS Safety Report 6506667-6 (Version None)
Quarter: 2009Q4

REPORT INFORMATION
  Report Type: 
  Country: None (occurrence: None)
  Receive Date: 20091221
  Receipt Date: 20091209
  Transmission Date: 20100525
  Serious: Yes (Hospitalization, Other)
  Sender: FDA-Public Use
  Company Number: US-ROCHE-673929

PATIENT
  Sex: Female
  Weight: 52.2 kg

DRUGS (3)
  1. ACCUTANE [Suspect]
     Indication: ACNE
     Route: 048
     Dates: start: 20070101, end: 20090101
  2. VALIUM [Suspect]
     Indication: HEADACHE
     Dosage: OTHER INDICATIONS: BACK PAIN, NECK PAIN
     Route: 065
  3. TETRACYCLINE [Suspect]
     Indication: ACNE
     Route: 065

REACTIONS (17)
  - ADRENOCORTICAL INSUFFICIENCY ACUTE [None]
  - BACK PAIN [None]
  - BENIGN INTRACRANIAL HYPERTENSION [None]
  - CANDIDIASIS [None]
  - CLOSTRIDIAL INFECTION [None]
  - COAGULOPATHY [None]
  - EROSIVE OESOPHAGITIS [None]
  - IMPAIRED HEALING [None]
  - INTERVERTEBRAL DISC PROTRUSION [None]
  - MYALGIA [None]
  - NECK PAIN [None]
  - NEURALGIA [None]
  - OSTEOPOROSIS [None]
  - PARALYSIS [None]
  - RASH [None]
  - SUBARACHNOID HAEMORRHAGE [None]
  - WEIGHT DECREASED [None]
